FAERS Safety Report 7391118-2 (Version None)
Quarter: 2011Q2

REPORT INFORMATION
  Report Type: 
  Country: None (occurrence: None)
  Receive Date: 20110404
  Receipt Date: 20110322
  Transmission Date: 20111010
  Serious: Yes (Hospitalization)
  Sender: FDA-Public Use
  Company Number: US-ELI_LILLY_AND_COMPANY-US201103007001

PATIENT
  Age: 46 Year
  Sex: Female

DRUGS (3)
  1. ASPIRIN                                 /USA/ [Concomitant]
  2. CYMBALTA [Suspect]
     Indication: DIABETIC NEUROPATHY
     Dosage: 60 MG, UNK
     Dates: start: 20060401
  3. CYMBALTA [Suspect]
     Dosage: UNK
     Dates: end: 20100601

REACTIONS (10)
  - EAR INJURY [None]
  - TINNITUS [None]
  - DIABETIC KETOACIDOSIS [None]
  - PERSECUTORY DELUSION [None]
  - JUDGEMENT IMPAIRED [None]
  - COMPULSIVE SHOPPING [None]
  - MEMORY IMPAIRMENT [None]
  - LIBIDO DECREASED [None]
  - ABNORMAL BEHAVIOUR [None]
  - DEAFNESS [None]
